FAERS Safety Report 13029260 (Version 1)
Quarter: 2016Q4

REPORT INFORMATION
  Report Type: Spontaneous
  Country: CA (occurrence: CA)
  Receive Date: 20161215
  Receipt Date: 20161215
  Transmission Date: 20170207
  Serious: Yes (Other)
  Sender: FDA-Public Use
  Company Number: CA-BIOGEN-2016BI00329509

PATIENT
  Age: 51 Year
  Sex: Female

DRUGS (1)
  1. AVONEX [Suspect]
     Active Substance: INTERFERON BETA-1A
     Indication: MULTIPLE SCLEROSIS
     Route: 030
     Dates: start: 20140201

REACTIONS (5)
  - Concussion [Recovered/Resolved]
  - Back injury [Recovered/Resolved]
  - Post-traumatic neck syndrome [Recovered/Resolved]
  - Road traffic accident [Recovered/Resolved]
  - Neck injury [Recovered/Resolved]

NARRATIVE: CASE EVENT DATE: 201505
